FAERS Safety Report 5873100-7 (Version None)
Quarter: 2008Q3

REPORT INFORMATION
  Report Type: 
  Country: None (occurrence: None)
  Receive Date: 20080902
  Receipt Date: 20080822
  Transmission Date: 20090109
  Serious: Yes (Hospitalization)
  Sender: FDA-Public Use
  Company Number: CHNY2008FR03184

PATIENT
  Age: 66 Year
  Sex: Female

DRUGS (2)
  1. SCOPOLAMINE [Suspect]
     Indication: DIZZINESS
     Dosage: TRANSDERMAL; 2 PATCHES AT THE SAME TIME, TRANSDERMAL
     Route: 062
     Dates: start: 20080509, end: 20080517
  2. SCOPOLAMINE [Suspect]
     Indication: DIZZINESS
     Dosage: TRANSDERMAL; 2 PATCHES AT THE SAME TIME, TRANSDERMAL
     Route: 062
     Dates: start: 20080517, end: 20080517

REACTIONS (6)
  - DELIRIUM [None]
  - HALLUCINATION, VISUAL [None]
  - INCOHERENT [None]
  - OFF LABEL USE [None]
  - OVERDOSE [None]
  - PERSECUTORY DELUSION [None]
